FAERS Safety Report 21721130 (Version 1)
Quarter: 2022Q4

REPORT INFORMATION
  Report Type: Spontaneous
  Country: US (occurrence: US)
  Receive Date: 20221213
  Receipt Date: 20221213
  Transmission Date: 20230112
  Serious: No
  Sender: FDA-Public Use
  Company Number: US-BRISTOL-MYERS SQUIBB COMPANY-2022-152071

PATIENT
  Age: 76 Year
  Sex: Female
  Weight: 63.5 kg

DRUGS (2)
  1. REVLIMID [Suspect]
     Active Substance: LENALIDOMIDE
     Indication: Plasma cell myeloma
     Dosage: DOSE : 1 CAPSULE;     FREQ : UNAVAILABLE
     Dates: start: 20220404
  2. PREDNISONE [Concomitant]
     Active Substance: PREDNISONE
     Indication: Blood pressure measurement

REACTIONS (1)
  - Adverse event [Unknown]
